FAERS Safety Report 6602877-8 (Version None)
Quarter: 2010Q1

REPORT INFORMATION
  Report Type: 
  Country: None (occurrence: None)
  Receive Date: 20100226
  Receipt Date: 20100211
  Transmission Date: 20100710
  Serious: Yes (Other)
  Sender: FDA-Public Use
  Company Number: US-ELI_LILLY_AND_COMPANY-US201001002677

PATIENT
  Sex: Female

DRUGS (5)
  1. FORTEO [Suspect]
     Indication: OSTEOPOROSIS
     Dosage: UNK, UNKNOWN
     Route: 065
     Dates: start: 20091201
  2. VITAMINS NOS [Concomitant]
  3. CALCIUM                                 /N/A/ [Concomitant]
  4. VITAMIN A                          /00056001/ [Concomitant]
  5. VITAMIN B                          /00056102/ [Concomitant]

REACTIONS (7)
  - CONSTIPATION [None]
  - DECREASED APPETITE [None]
  - EATING DISORDER [None]
  - MALAISE [None]
  - PAIN [None]
  - PELVIC FRACTURE [None]
  - WEIGHT DECREASED [None]
